FAERS Safety Report 8216843-2 (Version None)
Quarter: 2012Q1

REPORT INFORMATION
  Report Type: 
  Country: None (occurrence: None)
  Receive Date: 20120316
  Receipt Date: 20120307
  Transmission Date: 20120608
  Serious: Yes (Other)
  Sender: FDA-Public Use
  Company Number: FR-ASTRAZENECA-2011SE62585

PATIENT
  Age: 17629 Day
  Sex: Female

DRUGS (18)
  1. DEXAMETHASONE [Suspect]
     Route: 048
     Dates: start: 20110903, end: 20110904
  2. VANCOMYCIN [Suspect]
     Route: 042
     Dates: start: 20110905, end: 20110907
  3. AMBISOME [Suspect]
     Indication: ANTIFUNGAL PROPHYLAXIS
     Route: 042
     Dates: start: 20110903, end: 20110909
  4. LUTENYL [Concomitant]
     Route: 048
  5. IMOVANE [Suspect]
     Route: 048
     Dates: start: 20110826
  6. PIPERACILLIN AND TAZOBACTAM [Suspect]
     Dosage: 4G / 500 MG PER DOSE; 1 DF THREE TIMES A DAY
     Route: 042
     Dates: start: 20110902
  7. EMEND [Suspect]
     Route: 048
     Dates: start: 20110928
  8. GAVISCON [Concomitant]
     Route: 048
     Dates: start: 20110829, end: 20110906
  9. ESCITALOPRAM OXALATE [Concomitant]
     Indication: DEPRESSION
     Route: 048
     Dates: end: 20110910
  10. VINCRISTINE [Suspect]
     Indication: ACUTE LYMPHOCYTIC LEUKAEMIA
     Route: 042
     Dates: start: 20110827, end: 20110903
  11. VANCOMYCIN [Suspect]
     Route: 042
     Dates: start: 20110902, end: 20110904
  12. VALACYCLOVIR HYDROCHLORIDE [Suspect]
     Route: 048
     Dates: start: 20110820
  13. ALUMINUM HYDROXIDE AND MAGNESIUM TRISILICATE [Concomitant]
     Dosage: 3 G / 15 ML PER DOSE; 1 DF THREE TIMES A DAY
     Route: 048
     Dates: start: 20110904
  14. GLEEVEC [Suspect]
     Indication: ACUTE LYMPHOCYTIC LEUKAEMIA
     Route: 048
     Dates: start: 20110827
  15. DEXAMETHASONE [Suspect]
     Indication: ACUTE LYMPHOCYTIC LEUKAEMIA
     Route: 048
     Dates: start: 20110827, end: 20110828
  16. VANCOMYCIN [Suspect]
     Route: 042
     Dates: start: 20110908, end: 20110909
  17. OMEPRAZOLE [Suspect]
     Route: 048
     Dates: start: 20110829
  18. EMEND [Suspect]
     Indication: PROPHYLAXIS OF NAUSEA AND VOMITING
     Route: 048
     Dates: start: 20110827, end: 20110827

REACTIONS (1)
  - RENAL FAILURE [None]
